FAERS Safety Report 10067392 (Version 1)
Quarter: 2014Q2

REPORT INFORMATION
  Report Type: Spontaneous
  Country: IR (occurrence: None)
  Receive Date: 20140407
  Receipt Date: 20140407
  Transmission Date: 20141212
  Serious: Yes (Other)
  Sender: FDA-Public Use
  Company Number: FK201401107

PATIENT
  Age: 17 Year
  Sex: Male

DRUGS (1)
  1. DIMENHYDRINATE [Suspect]
     Indication: MOTION SICKNESS

REACTIONS (2)
  - Stevens-Johnson syndrome [None]
  - Drug hypersensitivity [None]
